FAERS Safety Report 12312261 (Version 2)
Quarter: 2016Q2

REPORT INFORMATION
  Report Type: Spontaneous
  Country: FR (occurrence: FR)
  Receive Date: 20160428
  Receipt Date: 20160509
  Transmission Date: 20160815
  Serious: Yes (Other)
  Sender: FDA-Public Use
  Company Number: FR-AUROBINDO-AUR-APL-2016-05116

PATIENT
  Sex: Female

DRUGS (4)
  1. LAMOTRIGINE ARROW CHEWABLE OR DISPERSIBLE TABLETS 25 MG [Suspect]
     Active Substance: LAMOTRIGINE
     Dosage: 25 MG, TWO IN THE MORNING AND TWO IN THE EVENING
     Route: 048
     Dates: start: 20160416
  2. LAMOTRIGINE ARROW CHEWABLE OR DISPERSIBLE TABLETS 25 MG [Suspect]
     Active Substance: LAMOTRIGINE
     Indication: PRODUCT USED FOR UNKNOWN INDICATION
     Dosage: 25 MG, ONE IN EVENING
     Route: 048
     Dates: start: 20160302, end: 20160316
  3. LAMOTRIGINE ARROW CHEWABLE OR DISPERSIBLE TABLETS 25 MG [Suspect]
     Active Substance: LAMOTRIGINE
     Dosage: 25 MG, ONE IN THE MORNING AND ONE IN THE EVENING
     Route: 048
     Dates: start: 20160317, end: 20160331
  4. LAMOTRIGINE ARROW CHEWABLE OR DISPERSIBLE TABLETS 25 MG [Suspect]
     Active Substance: LAMOTRIGINE
     Dosage: 25 MG, ONE IN THE MORNING AND TWO IN THE EVENING
     Route: 048
     Dates: start: 20160401, end: 20160415

REACTIONS (3)
  - Device computer issue [Recovered/Resolved]
  - Therapy cessation [Recovered/Resolved]
  - Epilepsy [Unknown]

NARRATIVE: CASE EVENT DATE: 20160404
